FAERS Safety Report 12167850 (Version 1)
Quarter: 2016Q1

REPORT INFORMATION
  Report Type: Spontaneous
  Country: US (occurrence: US)
  Receive Date: 20160310
  Receipt Date: 20160310
  Transmission Date: 20160526
  Serious: Yes (Hospitalization)
  Sender: FDA-Public Use
  Company Number: US-ASTRAZENECA-2016SE23279

PATIENT
  Age: 15800 Day
  Sex: Male
  Weight: 100.2 kg

DRUGS (4)
  1. ERGOCALCIFEROL. [Concomitant]
     Active Substance: ERGOCALCIFEROL
     Indication: VITAMIN D DEFICIENCY
     Route: 048
     Dates: start: 2013
  2. LISINOPRIL. [Suspect]
     Active Substance: LISINOPRIL
     Indication: BLOOD CHOLESTEROL ABNORMAL
     Route: 048
     Dates: start: 20150122
  3. FARXIGA [Suspect]
     Active Substance: DAPAGLIFLOZIN PROPANEDIOL
     Indication: TYPE 2 DIABETES MELLITUS
     Route: 048
     Dates: start: 20141028
  4. MYRBETIQ [Concomitant]
     Route: 048
     Dates: start: 20160210

REACTIONS (6)
  - Diabetic ketoacidosis [Unknown]
  - Tongue coated [Unknown]
  - Weight decreased [Unknown]
  - Tongue dry [Unknown]
  - Dysgeusia [Unknown]
  - Tachycardia [Unknown]

NARRATIVE: CASE EVENT DATE: 20160301
